FAERS Safety Report 18318334 (Version 1)
Quarter: 2020Q3

REPORT INFORMATION
  Report Type: Spontaneous
  Country: US (occurrence: US)
  Receive Date: 20200925
  Receipt Date: 20200925
  Transmission Date: 20201103
  Serious: Yes (Hospitalization)
  Sender: FDA-Public Use
  Company Number: None

PATIENT
  Age: 28 Year
  Sex: Male
  Weight: 87 kg

DRUGS (3)
  1. IFOSFAMIDE. [Suspect]
     Active Substance: IFOSFAMIDE
     Dates: end: 20200802
  2. CISPLATIN. [Suspect]
     Active Substance: CISPLATIN
     Dates: end: 20200802
  3. TAXOL [Suspect]
     Active Substance: PACLITAXEL
     Dates: start: 20200729

REACTIONS (2)
  - Antibiotic therapy [None]
  - Unevaluable event [None]

NARRATIVE: CASE EVENT DATE: 20200807
